FAERS Safety Report 18621918 (Version 1)
Quarter: 2020Q4

REPORT INFORMATION
  Report Type: Report from Study
  Country: None (occurrence: US)
  Receive Date: 20201215
  Receipt Date: 20201215
  Transmission Date: 20210114
  Serious: Yes (Other)
  Sender: FDA-Public Use
  Company Number: US-ABBVIE-20K-163-3689633-00

PATIENT
  Age: 58 Year
  Sex: Female

DRUGS (1)
  1. HUMIRA [Suspect]
     Active Substance: ADALIMUMAB
     Indication: PRODUCT USED FOR UNKNOWN INDICATION
     Route: 058
     Dates: start: 20200615

REACTIONS (4)
  - Colonoscopy [Recovered/Resolved]
  - Therapeutic product effect incomplete [Recovering/Resolving]
  - Unevaluable event [Unknown]
  - Biopsy colon [Recovered/Resolved]

NARRATIVE: CASE EVENT DATE: 20201002
